FAERS Safety Report 10024002 (Version 2)
Quarter: 2017Q4

REPORT INFORMATION
  Report Type: Spontaneous
  Country: CA (occurrence: CA)
  Receive Date: 20140320
  Receipt Date: 20171108
  Transmission Date: 20180320
  Serious: Yes (Other)
  Sender: FDA-Public Use
  Company Number: CA-MERCK-1403CAN008861

PATIENT
  Age: 49 Year
  Sex: Female

DRUGS (1)
  1. SINGULAIR [Suspect]
     Active Substance: MONTELUKAST SODIUM
     Indication: ASTHMA
     Dosage: 10 MG, DAILY (QHS)
     Route: 048

REACTIONS (5)
  - Pain in extremity [Unknown]
  - Foot fracture [Recovered/Resolved]
  - Postoperative wound infection [Unknown]
  - Drug dose omission [Unknown]
  - Bone graft [Recovered/Resolved]

NARRATIVE: CASE EVENT DATE: 201309
